FAERS Safety Report 7529668-8 (Version None)
Quarter: 2011Q2

REPORT INFORMATION
  Report Type: 
  Country: None (occurrence: None)
  Receive Date: 20110607
  Receipt Date: 20101216
  Transmission Date: 20111010
  Serious: Yes (Hospitalization)
  Sender: FDA-Public Use
  Company Number: A0903529A

PATIENT
  Age: 72 Year
  Sex: Male

DRUGS (1)
  1. AVANDIA [Suspect]
     Dosage: 4MG TWICE PER DAY
     Route: 048
     Dates: start: 20070129, end: 20100405

REACTIONS (5)
  - CARDIAC FAILURE CONGESTIVE [None]
  - STENT PLACEMENT [None]
  - ASTHENIA [None]
  - TREMOR [None]
  - GAIT DISTURBANCE [None]
